FAERS Safety Report 17187747 (Version 1)
Quarter: 2019Q4

REPORT INFORMATION
  Report Type: Spontaneous
  Country: FR (occurrence: FR)
  Receive Date: 20191221
  Receipt Date: 20191221
  Transmission Date: 20200122
  Serious: Yes (Other)
  Sender: FDA-Public Use
  Company Number: FR-ZYDUS-044795

PATIENT
  Age: 84 Year
  Sex: Female

DRUGS (11)
  1. ROSUVASTATIN/ROSUVASTATIN CALCIUM [Suspect]
     Active Substance: ROSUVASTATIN CALCIUM
     Indication: PROPHYLAXIS
     Route: 048
     Dates: start: 20130305, end: 20191105
  2. MACROGOL/MACROGOL STEARATE [Suspect]
     Active Substance: POLYETHYLENE GLYCOLS
     Indication: CONSTIPATION
     Route: 048
     Dates: start: 20191031, end: 20191106
  3. ENALAPRIL [Suspect]
     Active Substance: ENALAPRIL
     Indication: HYPERTENSION
     Route: 048
     Dates: end: 20191104
  4. AMLODIPINE/AMLODIPINE BESILATE/AMLODIPINE MALEATE/AMLODIPINE MESILATE [Concomitant]
  5. MORPHINE [Suspect]
     Active Substance: MORPHINE
     Indication: PAIN
     Route: 042
     Dates: start: 20191022, end: 20191030
  6. ACETYLSALICYLIC ACID [Concomitant]
     Active Substance: ASPIRIN
  7. CLOPIDOGREL [Concomitant]
     Active Substance: CLOPIDOGREL BISULFATE
  8. NEBIVOLOL/NEBIVOLOL HYDROCHLORIDE [Concomitant]
     Active Substance: NEBIVOLOL HYDROCHLORIDE
  9. METFORMIN [Suspect]
     Active Substance: METFORMIN HYDROCHLORIDE
     Indication: PROPHYLAXIS
     Route: 048
     Dates: end: 20191104
  10. ENOXAPARINE SODIQUE ((MAMMIFERE/PORC/MUQUEUSE INTESTINALE)) [Concomitant]
     Active Substance: ENOXAPARIN SODIUM
  11. PANTOPRAZOLE [Concomitant]
     Active Substance: PANTOPRAZOLE

REACTIONS (2)
  - Acute kidney injury [Recovered/Resolved]
  - Rhabdomyolysis [Recovering/Resolving]

NARRATIVE: CASE EVENT DATE: 20191104
